FAERS Safety Report 9259415 (Version 1)
Quarter: 2013Q2

REPORT INFORMATION
  Report Type: Report from Study
  Country: US (occurrence: US)
  Receive Date: 20130427
  Receipt Date: 20130427
  Transmission Date: 20140414
  Serious: Yes (Hospitalization)
  Sender: FDA-Public Use
  Company Number: US-ROCHE-1196279

PATIENT
  Age: 48 Year
  Sex: Female
  Weight: 61 kg

DRUGS (4)
  1. BEVACIZUMAB [Suspect]
     Indication: MALIGNANT PERITONEAL NEOPLASM
     Dosage: LAST DOSE OF PRIOR TO SAE ON 30/NOV/2012
     Route: 042
     Dates: start: 20120330
  2. CARBOPLATIN [Suspect]
     Indication: MALIGNANT PERITONEAL NEOPLASM
     Dosage: AUC 6, LAST DOSE OF PRIOR TO SAE ON 13/JUL/2012
     Route: 042
     Dates: start: 20120330
  3. PACLITAXEL [Suspect]
     Indication: MALIGNANT PERITONEAL NEOPLASM
     Dosage: LAST DOSE OF PRIOR TO SAE ON 20/JUL/2012
     Route: 042
     Dates: start: 20120330
  4. VELIPARIB [Suspect]
     Indication: MALIGNANT PERITONEAL NEOPLASM
     Dosage: LAST DOSE OF PRIOR TO SAE ON 17/JUL/2012
     Route: 048
     Dates: start: 20120330

REACTIONS (2)
  - Embolism [Unknown]
  - Confusional state [Recovered/Resolved with Sequelae]
